FAERS Safety Report 11624604 (Version 1)
Quarter: 2015Q4

REPORT INFORMATION
  Report Type: Spontaneous
  Country: CH (occurrence: CH)
  Receive Date: 20151013
  Receipt Date: 20151013
  Transmission Date: 20160304
  Serious: Yes (Life-Threatening, Hospitalization)
  Sender: FDA-Public Use
  Company Number: PHHY2015CH121684

PATIENT
  Age: 25 Year
  Sex: Female

DRUGS (10)
  1. ALGIFOR [Concomitant]
     Active Substance: IBUPROFEN
     Indication: PRODUCT USED FOR UNKNOWN INDICATION
     Dosage: 1 DF, UNK
     Route: 048
     Dates: start: 20150714, end: 20150714
  2. FLECTOR [Suspect]
     Active Substance: DICLOFENAC EPOLAMINE
     Indication: LIGAMENT SPRAIN
     Dosage: 1 DF, UNK
     Route: 003
     Dates: start: 20150523, end: 20150716
  3. VOLTAREN [Suspect]
     Active Substance: DICLOFENAC SODIUM
     Indication: LIGAMENT SPRAIN
     Dosage: 75 MG, BID
     Route: 048
     Dates: start: 20150523, end: 20150701
  4. OLFEN [Suspect]
     Active Substance: DICLOFENAC SODIUM
     Indication: LIGAMENT SPRAIN
     Dosage: 1 DF, UNK
     Route: 003
     Dates: start: 20150523, end: 20150716
  5. XYZAL [Concomitant]
     Active Substance: LEVOCETIRIZINE DIHYDROCHLORIDE
     Indication: PRODUCT USED FOR UNKNOWN INDICATION
     Dosage: 5 MG, QD
     Route: 065
     Dates: start: 20150716, end: 20150716
  6. GADOLINIUM [Suspect]
     Active Substance: GADOLINIUM
     Indication: NUCLEAR MAGNETIC RESONANCE IMAGING
     Route: 040
     Dates: start: 20150707, end: 20150707
  7. PANTOPRAZOLE MEPHA [Suspect]
     Active Substance: PANTOPRAZOLE SODIUM
     Indication: GASTRITIS PROPHYLAXIS
     Dosage: 20 MG, QD
     Route: 048
     Dates: start: 20150701, end: 20150704
  8. NOVALGIN [Suspect]
     Active Substance: METAMIZOLE SODIUM
     Indication: EPICONDYLITIS
     Dosage: 500 MG, TID
     Route: 048
     Dates: start: 20150701, end: 20150716
  9. TOBRADEX [Concomitant]
     Active Substance: DEXAMETHASONE\TOBRAMYCIN
     Indication: PRODUCT USED FOR UNKNOWN INDICATION
     Dosage: 1 GTT, TID
     Route: 047
     Dates: start: 20150716, end: 20150717
  10. FLUCONAZOLE. [Concomitant]
     Active Substance: FLUCONAZOLE
     Indication: PRODUCT USED FOR UNKNOWN INDICATION
     Dosage: 150 MG, UNK
     Route: 048
     Dates: start: 20150716, end: 20150716

REACTIONS (19)
  - Lip swelling [Recovering/Resolving]
  - Lung infiltration [Recovered/Resolved]
  - Vulvovaginal pruritus [Recovering/Resolving]
  - Dysphagia [Recovering/Resolving]
  - General physical health deterioration [Recovering/Resolving]
  - Respiratory failure [Recovered/Resolved]
  - Chills [Recovering/Resolving]
  - Nausea [Recovering/Resolving]
  - Dermatitis bullous [Recovering/Resolving]
  - Erythema [Recovering/Resolving]
  - Rash maculo-papular [Recovering/Resolving]
  - Oral disorder [Recovered/Resolved]
  - Cough [Recovered/Resolved]
  - Conjunctivitis [Recovering/Resolving]
  - Toxic epidermal necrolysis [Recovering/Resolving]
  - Headache [Recovering/Resolving]
  - Dyspnoea [Recovering/Resolving]
  - Oral mucosa erosion [Recovering/Resolving]
  - Pyrexia [Recovered/Resolved]

NARRATIVE: CASE EVENT DATE: 20150708
